FAERS Safety Report 6852856-0 (Version None)
Quarter: 2010Q3

REPORT INFORMATION
  Report Type: 
  Country: None (occurrence: None)
  Receive Date: 20100717
  Receipt Date: 20071228
  Transmission Date: 20110219
  Serious: Yes (Other)
  Sender: FDA-Public Use
  Company Number: US-PFIZER INC-2007098026

PATIENT
  Sex: Female

DRUGS (1)
  1. CHANTIX [Suspect]

REACTIONS (5)
  - BLADDER DISORDER [None]
  - BLOOD URINE PRESENT [None]
  - CERVIX CARCINOMA [None]
  - DYSURIA [None]
  - LYMPHADENECTOMY [None]
